FAERS Safety Report 8483049-1 (Version None)
Quarter: 2012Q3

REPORT INFORMATION
  Report Type: 
  Country: None (occurrence: None)
  Receive Date: 20120702
  Receipt Date: 20120626
  Transmission Date: 20120928
  Serious: Yes (Death)
  Sender: FDA-Public Use
  Company Number: DE-CELGENEUS-062-C5013-12053200

PATIENT
  Age: 58 Year
  Sex: Male
  Weight: 90.5 kg

DRUGS (44)
  1. DEXAMETHASONE SODIUM PHOSPHATE [Concomitant]
     Indication: DYSPNOEA
     Route: 065
     Dates: start: 20120523, end: 20120523
  2. POTASSIUM CHLORIDE [Concomitant]
     Route: 065
     Dates: start: 20120521, end: 20120525
  3. SODIUM CHLORIDE [Concomitant]
     Indication: PROPHYLAXIS
     Route: 065
     Dates: start: 20120521, end: 20120521
  4. COTRIM [Concomitant]
     Indication: INFECTION PROPHYLAXIS
     Route: 065
     Dates: end: 20120525
  5. MORPHINE SULFATE [Concomitant]
     Route: 065
     Dates: start: 20120524, end: 20120525
  6. PIROXICAM [Concomitant]
     Dosage: 20 MILLIGRAM
     Route: 065
     Dates: end: 20120525
  7. DIGITOXIN TAB [Concomitant]
     Dosage: .1 MILLIGRAM
     Route: 065
     Dates: end: 20120525
  8. PREGABALIN [Concomitant]
     Route: 065
     Dates: start: 20120522, end: 20120525
  9. CERTOPARIN [Concomitant]
     Indication: THROMBOSIS PROPHYLAXIS
     Route: 065
     Dates: start: 20120516, end: 20120525
  10. OMEPRAZOLE [Concomitant]
     Dosage: 20 MILLIGRAM
     Route: 065
     Dates: end: 20120525
  11. BISOPROLOL FUMARATE [Concomitant]
     Dosage: 20 MILLIGRAM
     Route: 065
     Dates: end: 20120525
  12. MOXONIDIN [Concomitant]
     Indication: HYPERTENSION
     Dosage: .3 MILLIGRAM
     Route: 065
     Dates: end: 20120525
  13. MIDAZOLAM [Concomitant]
     Indication: ANAESTHESIA
     Route: 065
     Dates: start: 20120522, end: 20120522
  14. ALBUTEROL SULATE [Concomitant]
     Route: 065
     Dates: start: 20120522, end: 20120525
  15. LENALIDOMIDE [Suspect]
     Indication: CHRONIC LYMPHOCYTIC LEUKAEMIA
     Route: 048
     Dates: start: 20120522, end: 20120524
  16. PIROXICAM [Concomitant]
     Indication: POLYARTHRITIS
     Dosage: 20 MILLIGRAM
     Route: 065
     Dates: end: 20120525
  17. RAMIPRIL [Concomitant]
     Dosage: 20 MILLIGRAM
     Route: 065
     Dates: end: 20120525
  18. ACYCLOVIR [Concomitant]
     Dosage: 1200 MILLIGRAM
     Route: 065
     Dates: end: 20120525
  19. PREGABALIN [Concomitant]
     Route: 065
     Dates: start: 20120516, end: 20120521
  20. MORPHINE SULFATE [Concomitant]
     Dosage: 90 MILLIGRAM
     Route: 065
     Dates: start: 20120516, end: 20120523
  21. NIFEDIPINA [Concomitant]
     Dosage: 20 MILLIGRAM
     Route: 065
     Dates: end: 20120525
  22. NIFEDIPINA [Concomitant]
     Dosage: 30 MILLIGRAM
     Route: 065
     Dates: end: 20120525
  23. ALBUTEROL SULATE [Concomitant]
     Indication: DYSPNOEA
     Route: 065
     Dates: end: 20120525
  24. BISOPROLOL FUMARATE [Concomitant]
     Indication: HYPERTENSION
     Dosage: 5 MILLIGRAM
     Route: 065
     Dates: end: 20120525
  25. DIGITOXIN TAB [Concomitant]
     Dosage: 20 MILLIGRAM
     Route: 065
     Dates: end: 20120525
  26. MOXONIDIN [Concomitant]
     Dosage: 30 MILLIGRAM
     Route: 065
     Dates: end: 20120525
  27. RAMIPRIL [Concomitant]
     Dosage: 30 MILLIGRAM
     Route: 065
     Dates: end: 20120525
  28. LORAZEPAM [Concomitant]
     Route: 065
     Dates: start: 20120520, end: 20120525
  29. ALLOPURINOL [Concomitant]
     Indication: PROPHYLAXIS
     Route: 065
     Dates: start: 20120519, end: 20120525
  30. BISOPROLOL FUMARATE [Concomitant]
     Dosage: 30 MILLIGRAM
     Route: 065
     Dates: end: 20120525
  31. DIGITOXIN TAB [Concomitant]
     Dosage: 30 MILLIGRAM
     Route: 065
     Dates: end: 20120525
  32. ACYCLOVIR [Concomitant]
     Dosage: 20 MILLIGRAM
     Route: 065
     Dates: end: 20120525
  33. OXYGEN [Concomitant]
     Indication: HYPOXIA
     Route: 065
     Dates: start: 20120522, end: 20120525
  34. FENTANYL CITRATE [Concomitant]
     Route: 065
     Dates: start: 20120524, end: 20120524
  35. POLYETHYLENE GLYCOL [Concomitant]
     Indication: PROPHYLAXIS
     Route: 065
     Dates: end: 20120525
  36. ASPIRIN [Concomitant]
     Indication: THROMBOSIS PROPHYLAXIS
     Dosage: 100 MILLIGRAM
     Route: 065
     Dates: start: 20101001, end: 20120525
  37. OMEPRAZOLE [Concomitant]
     Dosage: 20 MILLIGRAM
     Route: 065
     Dates: end: 20120525
  38. NIFEDIPINA [Concomitant]
     Indication: HYPERTENSION
     Dosage: 100 MILLIGRAM
     Route: 065
     Dates: start: 20101001, end: 20120525
  39. MOXONIDIN [Concomitant]
     Dosage: 20 MILLIGRAM
     Route: 065
     Dates: end: 20120525
  40. RAMIPRIL [Concomitant]
     Indication: HYPERTENSION
     Dosage: 5 MILLIGRAM
     Route: 065
     Dates: end: 20120525
  41. ACYCLOVIR [Concomitant]
     Dosage: 30 MILLIGRAM
     Route: 065
     Dates: end: 20120525
  42. CLONAZEPAM [Concomitant]
     Route: 065
     Dates: start: 20120524, end: 20120524
  43. DIPYRONE TAB [Concomitant]
     Route: 065
     Dates: start: 20120521, end: 20120521
  44. FORMOTEROLHEMIFUMARAT [Concomitant]
     Indication: DYSPNOEA
     Route: 065
     Dates: start: 20120523, end: 20120525

REACTIONS (2)
  - CARDIOGENIC SHOCK [None]
  - MYOCARDIAL INFARCTION [None]
